FAERS Safety Report 8244793-4 (Version None)
Quarter: 2012Q1

REPORT INFORMATION
  Report Type: 
  Country: None (occurrence: None)
  Receive Date: 20120329
  Receipt Date: 20110414
  Transmission Date: 20120608
  Serious: No
  Sender: FDA-Public Use
  Company Number: US-MYLANLABS-2011S1007729

PATIENT
  Sex: Male

DRUGS (4)
  1. OXYCODONE HCL [Concomitant]
     Indication: BREAKTHROUGH PAIN
     Dosage: FROM 6 TO 10 DOSES DAILY
     Dates: start: 20110101
  2. FENTANYL-100 [Suspect]
     Indication: SPINAL FRACTURE
     Dosage: Q3D
     Route: 062
     Dates: start: 20110316, end: 20110301
  3. FENTANYL-100 [Suspect]
     Dosage: Q3D
     Route: 062
     Dates: start: 20110301
  4. FENTANYL-100 [Suspect]
     Dosage: Q3D
     Route: 062
     Dates: start: 20110301

REACTIONS (3)
  - BACK PAIN [None]
  - FLUSHING [None]
  - DRUG EFFECT DECREASED [None]
